FAERS Safety Report 19586752 (Version 1)
Quarter: 2021Q3

REPORT INFORMATION
  Report Type: Spontaneous
  Country: JP (occurrence: JP)
  Receive Date: 20210720
  Receipt Date: 20210720
  Transmission Date: 20211014
  Serious: Yes (Hospitalization)
  Sender: FDA-Public Use
  Company Number: JP-TAKEDA-2021TJP044184

PATIENT
  Age: 76 Year
  Sex: Female
  Weight: 37.1 kg

DRUGS (4)
  1. ALUNBRIG [Suspect]
     Active Substance: BRIGATINIB
     Indication: LUNG NEOPLASM MALIGNANT
     Dosage: 90 MILLIGRAM, QD
     Route: 048
     Dates: start: 20210528, end: 20210603
  2. CELECOXIB. [Concomitant]
     Active Substance: CELECOXIB
     Indication: CANCER PAIN
     Dosage: 100 MILLIGRAM, BID
     Route: 048
     Dates: start: 20210603
  3. ALUNBRIG [Suspect]
     Active Substance: BRIGATINIB
     Dosage: 180 MILLIGRAM, QD
     Route: 048
     Dates: start: 20210604, end: 20210618
  4. TAPENTA [Concomitant]
     Active Substance: TAPENTADOL HYDROCHLORIDE
     Indication: CANCER PAIN
     Dosage: 25 MILLIGRAM, BID
     Route: 048
     Dates: start: 20210610

REACTIONS (1)
  - Lung disorder [Recovering/Resolving]

NARRATIVE: CASE EVENT DATE: 20210617
